FAERS Safety Report 12132611 (Version 2)
Quarter: 2016Q2

REPORT INFORMATION
  Report Type: Spontaneous
  Country: US (occurrence: US)
  Receive Date: 20160301
  Receipt Date: 20160401
  Transmission Date: 20160815
  Serious: No
  Sender: FDA-Public Use
  Company Number: US-JNJFOC-20160123495

PATIENT
  Sex: Female
  Weight: 57.61 kg

DRUGS (1)
  1. XARELTO [Suspect]
     Active Substance: RIVAROXABAN
     Indication: DEEP VEIN THROMBOSIS
     Route: 048
     Dates: start: 201601

REACTIONS (6)
  - Sensory disturbance [Not Recovered/Not Resolved]
  - Contusion [Unknown]
  - Accident [Recovered/Resolved]
  - Yellow skin [Unknown]
  - Limb injury [Recovered/Resolved]
  - Product size issue [Unknown]

NARRATIVE: CASE EVENT DATE: 20160124
